FAERS Safety Report 19110965 (Version 1)
Quarter: 2021Q2

REPORT INFORMATION
  Report Type: Other
  Country: FR (occurrence: FR)
  Receive Date: 20210409
  Receipt Date: 20210409
  Transmission Date: 20210717
  Serious: Yes (Hospitalization, Other)
  Sender: FDA-Public Use
  Company Number: FR-ASPEN-GLO2021FR002093

PATIENT

DRUGS (1)
  1. LANVIS [Suspect]
     Active Substance: THIOGUANINE ANHYDROUS
     Indication: CROHN^S DISEASE
     Dosage: 20 MG, QD
     Route: 048
     Dates: start: 20210126, end: 20210205

REACTIONS (4)
  - Condition aggravated [Recovered/Resolved]
  - Hepatitis cholestatic [Recovered/Resolved]
  - Thrombocytopenia [Recovered/Resolved]
  - Lymphopenia [Recovered/Resolved]

NARRATIVE: CASE EVENT DATE: 20210205
